FAERS Safety Report 9657267 (Version 2)
Quarter: 2013Q4

REPORT INFORMATION
  Report Type: Spontaneous
  Country: US (occurrence: US)
  Receive Date: 20131030
  Receipt Date: 20131119
  Transmission Date: 20140711
  Serious: Yes (Other)
  Sender: FDA-Public Use
  Company Number: US-GILEAD-2013-0086471

PATIENT
  Sex: Female

DRUGS (3)
  1. LETAIRIS [Suspect]
     Indication: PULMONARY ARTERIAL HYPERTENSION
     Dosage: 10 MG, QD
     Route: 048
     Dates: start: 20090719
  2. TYVASO [Concomitant]
  3. SILDENAFIL [Concomitant]

REACTIONS (3)
  - Myocardial infarction [Unknown]
  - Pulmonary arterial hypertension [Unknown]
  - Abdominal pain upper [Unknown]
